FAERS Safety Report 11158898 (Version 3)
Quarter: 2015Q4

REPORT INFORMATION
  Report Type: Report from Study
  Country: US (occurrence: US)
  Receive Date: 20150603
  Receipt Date: 20151026
  Transmission Date: 20160304
  Serious: Yes (Hospitalization)
  Sender: FDA-Public Use
  Company Number: US-BAYER-2015-271848

PATIENT
  Age: 60 Year
  Sex: Female

DRUGS (1)
  1. STIVARGA [Suspect]
     Active Substance: REGORAFENIB
     Indication: PRODUCT USED FOR UNKNOWN INDICATION
     Dosage: 160 MG, QD X 3 WKS (40 MG TAB)
     Route: 048
     Dates: start: 20150410

REACTIONS (4)
  - Blister [None]
  - Malaise [None]
  - Influenza [None]
  - Swelling [None]
